FAERS Safety Report 5636218-X (Version None)
Quarter: 2008Q1

REPORT INFORMATION
  Report Type: 
  Country: None (occurrence: None)
  Receive Date: 20080220
  Receipt Date: 20080220
  Transmission Date: 20080703
  Serious: Yes (Hospitalization)
  Sender: FDA-Public Use
  Company Number: None

PATIENT
  Sex: Female
  Weight: 106 kg

DRUGS (14)
  1. DAUNORUBICIN HCL [Suspect]
     Dosage: 95 MG
     Dates: end: 20040930
  2. ELSPAR [Suspect]
     Dosage: 12500 UNIT
     Dates: end: 20041005
  3. VINCRISTINE SULFATE [Suspect]
     Dosage: 1 MG
     Dates: end: 20041005
  4. AZITHROMYCIN [Concomitant]
  5. CEFEPIME [Concomitant]
  6. FILGRASTIM [Concomitant]
  7. HUMULIN 70/30 [Concomitant]
  8. MAGNESIUM SULFATE [Concomitant]
  9. METRONIDAZOLE HCL [Concomitant]
  10. ONDANSETRON [Concomitant]
  11. PANTOPRAZOLE [Concomitant]
  12. POTASSIUM CHLORIDE [Concomitant]
  13. VANCOMYCIN [Concomitant]
  14. VORICONAZOLE [Concomitant]

REACTIONS (12)
  - ANAEMIA [None]
  - BLOOD BILIRUBIN INCREASED [None]
  - BLOOD PH DECREASED [None]
  - NEUTROPENIA [None]
  - PCO2 INCREASED [None]
  - PNEUMONIA [None]
  - PO2 INCREASED [None]
  - REFUSAL OF TREATMENT BY RELATIVE [None]
  - RENAL FAILURE ACUTE [None]
  - RESPIRATORY RATE INCREASED [None]
  - THROMBOCYTOPENIA [None]
  - UNRESPONSIVE TO STIMULI [None]
